FAERS Safety Report 6610042-3 (Version None)
Quarter: 2010Q1

REPORT INFORMATION
  Report Type: 
  Country: None (occurrence: None)
  Receive Date: 20100302
  Receipt Date: 20100221
  Transmission Date: 20100710
  Serious: Yes (Hospitalization, Disabling, Other)
  Sender: FDA-Public Use
  Company Number: IL-ROCHE-687421

PATIENT
  Age: 16 Year
  Sex: Male

DRUGS (2)
  1. ROACCUTANE [Suspect]
     Indication: ACNE
     Route: 048
     Dates: start: 20010121, end: 20010222
  2. ROACCUTANE [Suspect]
     Dosage: DOSE INCREASED
     Route: 048
     Dates: start: 20010222, end: 20010501

REACTIONS (17)
  - AFFECT LABILITY [None]
  - AGGRESSION [None]
  - ANXIETY [None]
  - CATATONIA [None]
  - HALLUCINATION, AUDITORY [None]
  - ILLUSION [None]
  - INCOHERENT [None]
  - INSOMNIA [None]
  - IRRITABILITY [None]
  - JUDGEMENT IMPAIRED [None]
  - LEARNING DISORDER [None]
  - NERVOUSNESS [None]
  - PARANOIA [None]
  - PSYCHOTIC DISORDER [None]
  - SCHIZOPHRENIA [None]
  - SUICIDE ATTEMPT [None]
  - THINKING ABNORMAL [None]
